FAERS Safety Report 11544218 (Version 1)
Quarter: 2015Q3

REPORT INFORMATION
  Report Type: Spontaneous
  Country: US (occurrence: None)
  Receive Date: 20150923
  Receipt Date: 20150923
  Transmission Date: 20151125
  Serious: Yes (Other)
  Sender: FDA-Public Use
  Company Number: None

PATIENT
  Age: 62 Year
  Sex: Male
  Weight: 92.53 kg

DRUGS (10)
  1. ETODOLAC. [Concomitant]
     Active Substance: ETODOLAC
  2. ZOLPIDEM TARTRATE. [Concomitant]
     Active Substance: ZOLPIDEM TARTRATE
  3. BENZONATATE. [Concomitant]
     Active Substance: BENZONATATE
  4. MINOCYCLINE [Concomitant]
     Active Substance: MINOCYCLINE\MINOCYCLINE HYDROCHLORIDE
  5. TRAMADOL. [Concomitant]
     Active Substance: TRAMADOL
  6. OMEPRAZOLE. [Concomitant]
     Active Substance: OMEPRAZOLE
  7. PIRFENIDONE 267 MG [Suspect]
     Active Substance: PIRFENIDONE
     Indication: IDIOPATHIC PULMONARY FIBROSIS
     Route: 048
     Dates: start: 20150623, end: 20150706
  8. LORATADINE. [Concomitant]
     Active Substance: LORATADINE
  9. ALBUTEROL. [Concomitant]
     Active Substance: ALBUTEROL
  10. PSEUDOEPHEDRINE [Concomitant]
     Active Substance: PSEUDOEPHEDRINE

REACTIONS (11)
  - Pain [None]
  - Mood altered [None]
  - Pulmonary oedema [None]
  - Wheezing [None]
  - Malaise [None]
  - Suicidal ideation [None]
  - Cough [None]
  - Respiratory tract congestion [None]
  - Fear [None]
  - Pulmonary pain [None]
  - Lower respiratory tract inflammation [None]

NARRATIVE: CASE EVENT DATE: 20150706
